FAERS Safety Report 6596494-6 (Version None)
Quarter: 2010Q1

REPORT INFORMATION
  Report Type: 
  Country: None (occurrence: None)
  Receive Date: 20100216
  Receipt Date: 20100129
  Transmission Date: 20100710
  Serious: Yes (Hospitalization)
  Sender: FDA-Public Use
  Company Number: LMI-2010-00045

PATIENT
  Age: 72 Year
  Sex: Female
  Weight: 154.223 kg

DRUGS (1)
  1. DEFINITY [Suspect]
     Indication: ECHOCARDIOGRAM
     Dosage: INTRAVENOUS
     Route: 042
     Dates: start: 20091210, end: 20091210

REACTIONS (12)
  - ASTHENIA [None]
  - BACK PAIN [None]
  - BLADDER PAIN [None]
  - BLOOD URINE [None]
  - BURNING SENSATION [None]
  - DIALYSIS [None]
  - DIZZINESS [None]
  - DRUG INTERACTION [None]
  - LOCALISED INFECTION [None]
  - MUSCLE TWITCHING [None]
  - RENAL FAILURE [None]
  - RETCHING [None]
